FAERS Safety Report 14997560 (Version 7)
Quarter: 2020Q1

REPORT INFORMATION
  Report Type: Spontaneous
  Country: US (occurrence: US)
  Receive Date: 20180611
  Receipt Date: 20200107
  Transmission Date: 20200409
  Serious: Yes (Other)
  Sender: FDA-Public Use
  Company Number: US-VIFOR (INTERNATIONAL) INC.-VIT-2018-05409

PATIENT
  Age: 86 Year
  Sex: Female
  Weight: 70.37 kg

DRUGS (19)
  1. LEVOTHYROXINE SODIUM. [Concomitant]
     Active Substance: LEVOTHYROXINE SODIUM
  2. HUMALOG [Concomitant]
     Active Substance: INSULIN LISPRO
     Dosage: ACCORDING TO THE READINGS IF THE READINGS ARE ABOVE 200
  3. VELTASSA [Suspect]
     Active Substance: PATIROMER
     Indication: HYPERKALAEMIA
     Route: 048
     Dates: start: 20180512
  4. FERROUS SULFATE. [Concomitant]
     Active Substance: FERROUS SULFATE
  5. MULTIPLE VITAMIN [Concomitant]
     Active Substance: VITAMINS
  6. KRILL OIL [Concomitant]
     Active Substance: DIETARY SUPPLEMENT\KRILL OIL
  7. CANDESARTAN CILEXETIL-HCTZ [Concomitant]
  8. AMLODIPINE BESYLATE. [Concomitant]
     Active Substance: AMLODIPINE BESYLATE
  9. ELIQUIS [Concomitant]
     Active Substance: APIXABAN
  10. FLUTICASONE PROPIONATE. [Concomitant]
     Active Substance: FLUTICASONE PROPIONATE
  11. VALSARTAN. [Concomitant]
     Active Substance: VALSARTAN
  12. OMEGA 3 [Concomitant]
     Active Substance: OMEGA-3 FATTY ACIDS
  13. LANTUS [Concomitant]
     Active Substance: INSULIN GLARGINE
  14. ATENOLOL. [Concomitant]
     Active Substance: ATENOLOL
  15. HYDROCHLOROTHIAZIDE. [Concomitant]
     Active Substance: HYDROCHLOROTHIAZIDE
  16. MELATONIN [Concomitant]
     Active Substance: MELATONIN
  17. SIMVASTATIN. [Concomitant]
     Active Substance: SIMVASTATIN
  18. GLIMEPIRIDE. [Concomitant]
     Active Substance: GLIMEPIRIDE
  19. IRON [Concomitant]
     Active Substance: IRON

REACTIONS (7)
  - Constipation [Not Recovered/Not Resolved]
  - Nail disorder [Not Recovered/Not Resolved]
  - Hypertension [Not Recovered/Not Resolved]
  - Product dose omission [Unknown]
  - Fatigue [Not Recovered/Not Resolved]
  - Alopecia [Not Recovered/Not Resolved]
  - Presbyacusis [Unknown]

NARRATIVE: CASE EVENT DATE: 2018
